FAERS Safety Report 26186895 (Version 1)
Quarter: 2025Q4

REPORT INFORMATION
  Report Type: Spontaneous
  Country: US (occurrence: US)
  Receive Date: 20251222
  Receipt Date: 20251222
  Transmission Date: 20260117
  Serious: Yes (Hospitalization, Other)
  Sender: PROCTER AND GAMBLE
  Company Number: US-PROCTER+GAMBLE-PH25021644

PATIENT
  Age: 15 Year
  Sex: Male

DRUGS (1)
  1. DIPHENHYDRAMINE HYDROCHLORIDE [Suspect]
     Active Substance: DIPHENHYDRAMINE HYDROCHLORIDE
     Dosage: 7.5 GRAM

REACTIONS (21)
  - Intentional overdose [Unknown]
  - Tachycardia [Unknown]
  - Tachypnoea [Unknown]
  - Body temperature increased [Unknown]
  - Sinus tachycardia [Unknown]
  - Electrocardiogram QRS complex prolonged [Recovering/Resolving]
  - Electrocardiogram QT prolonged [Unknown]
  - QRS axis abnormal [Unknown]
  - Seizure [Unknown]
  - Vomiting [Unknown]
  - Aspiration [Unknown]
  - Hypoxia [Unknown]
  - PO2 decreased [Unknown]
  - Blood pH decreased [Unknown]
  - Pulse absent [Recovering/Resolving]
  - Acute respiratory distress syndrome [Unknown]
  - Ventricular tachycardia [Unknown]
  - Cardiac arrest [Unknown]
  - Acidosis [Unknown]
  - Gastrointestinal motility disorder [Unknown]
  - Drug half-life increased [Unknown]
